FAERS Safety Report 11690646 (Version 1)
Quarter: 2015Q4

REPORT INFORMATION
  Report Type: Report from Study
  Country: KR (occurrence: KR)
  Receive Date: 20151102
  Receipt Date: 20151102
  Transmission Date: 20160304
  Serious: Yes (Other)
  Sender: FDA-Public Use
  Company Number: KR-BAYER-2014-102274

PATIENT
  Age: 66 Year
  Sex: Male

DRUGS (1)
  1. BETAFERON [Suspect]
     Active Substance: INTERFERON BETA-1B
     Indication: MULTIPLE SCLEROSIS
     Dosage: 1 ML, QOD
     Route: 058
     Dates: start: 200611

REACTIONS (14)
  - Musculoskeletal stiffness [Not Recovered/Not Resolved]
  - Hearing impaired [None]
  - Prostatitis [Not Recovered/Not Resolved]
  - Injection site bruising [None]
  - Paraesthesia [Recovering/Resolving]
  - Hypoaesthesia [Not Recovered/Not Resolved]
  - Pain [Recovering/Resolving]
  - Herpes zoster [Recovering/Resolving]
  - Weight decreased [Not Recovered/Not Resolved]
  - Benign neoplasm of prostate [None]
  - Injection site induration [Recovering/Resolving]
  - Injection site pain [Recovered/Resolved]
  - Hypoaesthesia [None]
  - Muscular weakness [Not Recovered/Not Resolved]

NARRATIVE: CASE EVENT DATE: 201507
